FAERS Safety Report 5446954-6 (Version None)
Quarter: 2007Q3

REPORT INFORMATION
  Report Type: 
  Country: None (occurrence: None)
  Receive Date: 20070907
  Receipt Date: 20070831
  Transmission Date: 20080115
  Serious: Yes (Hospitalization)
  Sender: FDA-Public Use
  Company Number: US-GENENTECH-247091

PATIENT
  Sex: Male

DRUGS (12)
  1. ERLOTINIB [Suspect]
     Indication: COLORECTAL CANCER
     Dosage: 75 MG, QD
     Route: 048
     Dates: start: 20070131
  2. BEVACIZUMAB [Suspect]
     Indication: COLORECTAL CANCER
     Dosage: 451 MG, Q2W
     Route: 042
     Dates: start: 20070130
  3. EVEROLIMUS [Suspect]
     Indication: COLORECTAL CANCER
     Dosage: 5 MG, QD
     Route: 048
     Dates: start: 20070116
  4. DITROPAN XL [Concomitant]
     Indication: DRUG USE FOR UNKNOWN INDICATION
     Dosage: 10 MG, QD
  5. IRON [Concomitant]
     Indication: DRUG USE FOR UNKNOWN INDICATION
     Dosage: 65 MG, QD
  6. M.V.I. [Concomitant]
     Indication: DRUG USE FOR UNKNOWN INDICATION
     Dosage: 1 TABLET, QD
  7. PRILOSEC [Concomitant]
     Indication: DRUG USE FOR UNKNOWN INDICATION
     Dosage: 40 MG, QD
  8. NORVASC [Concomitant]
     Indication: DRUG USE FOR UNKNOWN INDICATION
     Dosage: 10 MG, QD
     Dates: start: 20060620
  9. GAS-X [Concomitant]
     Indication: DRUG USE FOR UNKNOWN INDICATION
     Dosage: UNK, PRN
  10. AUGMENTIN '125' [Concomitant]
     Indication: DRUG USE FOR UNKNOWN INDICATION
     Dosage: 500 MG, BID
     Dates: start: 20070202
  11. DEXAMETHASONE 0.5MG TAB [Concomitant]
     Indication: DRUG USE FOR UNKNOWN INDICATION
     Dosage: 4 MG, QD
     Dates: start: 20070213
  12. DIOVAN [Concomitant]
     Indication: DRUG USE FOR UNKNOWN INDICATION
     Dosage: 80 MG, QD
     Dates: start: 20070213

REACTIONS (6)
  - ANOREXIA [None]
  - DEHYDRATION [None]
  - FATIGUE [None]
  - FISTULA [None]
  - HYPERGLYCAEMIA [None]
  - STRESS [None]
